FAERS Safety Report 5057636-7 (Version None)
Quarter: 2006Q3

REPORT INFORMATION
  Report Type: 
  Country: None (occurrence: None)
  Receive Date: 20060721
  Receipt Date: 20060105
  Transmission Date: 20061208
  Serious: No
  Sender: FDA-Public Use
  Company Number: US-GLAXOSMITHKLINE-A0587967A

PATIENT
  Age: 58 Year
  Sex: Male

DRUGS (6)
  1. AVANDIA [Suspect]
     Dosage: 4MG PER DAY
     Route: 048
     Dates: start: 20050101
  2. METFORMIN [Suspect]
     Dosage: 500MG PER DAY
     Dates: start: 20050101
  3. TOPAMAX [Concomitant]
  4. KEPPRA [Concomitant]
  5. DEPAKOTE [Concomitant]
  6. PROPANOL [Concomitant]

REACTIONS (1)
  - BLOOD GLUCOSE INCREASED [None]
